FAERS Safety Report 11911034 (Version 2)
Quarter: 2016Q2

REPORT INFORMATION
  Report Type: Spontaneous
  Country: FR (occurrence: FR)
  Receive Date: 20160112
  Receipt Date: 20160504
  Transmission Date: 20160815
  Serious: Yes (Hospitalization)
  Sender: FDA-Public Use
  Company Number: FR-TEVA-624002ISR

PATIENT
  Age: 34 Year
  Sex: Male

DRUGS (6)
  1. LITAK [Suspect]
     Active Substance: CLADRIBINE
     Route: 058
     Dates: start: 20150615, end: 20150619
  2. VALACICLOVIR [Suspect]
     Active Substance: VALACYCLOVIR HYDROCHLORIDE
     Route: 048
     Dates: start: 20150622, end: 20150926
  3. TEVAGRASTIM [Suspect]
     Active Substance: FILGRASTIM
     Route: 048
     Dates: start: 20150622, end: 20150629
  4. LITAK [Suspect]
     Active Substance: CLADRIBINE
     Indication: HAIRY CELL LEUKAEMIA
     Dosage: 5 INJECTIONS
     Route: 065
     Dates: start: 201202
  5. WELLVONE [Suspect]
     Active Substance: ATOVAQUONE
     Route: 048
     Dates: start: 20150622, end: 20150629
  6. ORACILLINE [Suspect]
     Active Substance: PENICILLIN V
     Route: 048
     Dates: start: 20150622, end: 20150629

REACTIONS (2)
  - Toxic skin eruption [Recovered/Resolved]
  - Rash maculo-papular [Recovered/Resolved]

NARRATIVE: CASE EVENT DATE: 20150626
